FAERS Safety Report 4369451-8 (Version None)
Quarter: 2004Q2

REPORT INFORMATION
  Report Type: 
  Country: None (occurrence: None)
  Receive Date: 20040527
  Receipt Date: 20040507
  Transmission Date: 20050107
  Serious: Yes (Hospitalization)
  Sender: FDA-Public Use
  Company Number: USA040566988

PATIENT
  Age: 50 Year
  Sex: Male
  Weight: 109 kg

DRUGS (4)
  1. ZYPREXA [Suspect]
     Indication: AGITATION
     Dosage: 30 MG/1 DAY
     Dates: start: 20040507
  2. ATIVAN [Concomitant]
  3. DEPAKOTE [Concomitant]
  4. .... [Concomitant]

REACTIONS (5)
  - BRADYCARDIA [None]
  - CHEST PAIN [None]
  - DISORIENTATION [None]
  - RESPIRATORY DISTRESS [None]
  - SOLILOQUY [None]
